FAERS Safety Report 13693160 (Version 7)
Quarter: 2018Q3

REPORT INFORMATION
  Report Type: Report from Study
  Country: BR (occurrence: BR)
  Receive Date: 20170627
  Receipt Date: 20180814
  Transmission Date: 20181010
  Serious: Yes (Death, Life-Threatening, Hospitalization, Other)
  Sender: FDA-Public Use
  Company Number: PHHY2017BR089878

PATIENT
  Age: 74 Year
  Sex: Male
  Weight: 44 kg

DRUGS (5)
  1. ALENIA [Concomitant]
     Active Substance: BUDESONIDE\FORMOTEROL FUMARATE
     Indication: LUNG DISORDER
     Dosage: 2 DF, QD
     Route: 055
  2. SANDOSTATIN LAR DEPOT [Suspect]
     Active Substance: OCTREOTIDE ACETATE
     Indication: LUNG NEOPLASM MALIGNANT
  3. SANDOSTATIN LAR DEPOT [Suspect]
     Active Substance: OCTREOTIDE ACETATE
     Indication: HEPATIC CANCER
  4. ALENIA [Concomitant]
     Active Substance: BUDESONIDE\FORMOTEROL FUMARATE
     Indication: LUNG NEOPLASM MALIGNANT
  5. SANDOSTATIN LAR DEPOT [Suspect]
     Active Substance: OCTREOTIDE ACETATE
     Indication: NEUROENDOCRINE TUMOUR
     Dosage: 30 MG, QMO
     Route: 030
     Dates: start: 20170101

REACTIONS (16)
  - Pneumonia [Recovered/Resolved]
  - Lung disorder [Unknown]
  - Needle issue [Unknown]
  - Injection site pain [Unknown]
  - Weight decreased [Unknown]
  - Feeling abnormal [Unknown]
  - Cough [Recovered/Resolved]
  - Malaise [Unknown]
  - Respiratory arrest [Fatal]
  - Depression [Unknown]
  - Hepatic neoplasm [Unknown]
  - Liver disorder [Not Recovered/Not Resolved]
  - Asthenia [Unknown]
  - Dyspnoea [Unknown]
  - Pain in extremity [Unknown]
  - Weight increased [Unknown]

NARRATIVE: CASE EVENT DATE: 20180602
